FAERS Safety Report 8979044 (Version 1)
Quarter: 2012Q4

REPORT INFORMATION
  Report Type: 
  Country: BR (occurrence: BR)
  Receive Date: 20121221
  Receipt Date: 20121221
  Transmission Date: 20130627
  Serious: Yes (Death, Hospitalization, Other)
  Sender: FDA-Public Use
  Company Number: BR-BIOMARINP-003212

PATIENT
  Age: 11 Year
  Sex: Female
  Weight: 25 kg

DRUGS (3)
  1. NAGLAZYME [Suspect]
     Indication: MUCOPOLYSACCHARIDOSIS VI
     Dosage: 25mg,qw
     Route: 041
     Dates: start: 20100519, end: 20120321
  2. NAGLAZYME [Suspect]
     Dosage: UNK
     Dates: start: 20120523
  3. TAMIFLU [Concomitant]
     Indication: PROPHYLAXIS
     Dosage: 75 mg, bid
     Route: 048
     Dates: start: 20121030, end: 20121108

REACTIONS (10)
  - Bronchopneumonia [Fatal]
  - Sepsis [Unknown]
  - Respiratory failure [Unknown]
  - Pyrexia [Unknown]
  - Cough [Unknown]
  - Abdominal discomfort [Unknown]
  - Dyspnoea [Unknown]
  - Pain [Unknown]
  - Abdominal distension [Unknown]
  - Decreased activity [Unknown]
